FAERS Safety Report 17545625 (Version 1)
Quarter: 2020Q1

REPORT INFORMATION
  Report Type: Spontaneous
  Country: CH (occurrence: CH)
  Receive Date: 20200316
  Receipt Date: 20200316
  Transmission Date: 20200409
  Serious: Yes (Other)
  Sender: FDA-Public Use
  Company Number: CH-BEH-2020114589

PATIENT
  Sex: Male

DRUGS (2)
  1. PRIVIGEN [Suspect]
     Active Substance: HUMAN IMMUNOGLOBULIN G
     Indication: STEM CELL TRANSPLANT
  2. PRIVIGEN [Suspect]
     Active Substance: HUMAN IMMUNOGLOBULIN G
     Indication: PLASMA CELL MYELOMA IN REMISSION
     Route: 065

REACTIONS (6)
  - Graft versus host disease [Unknown]
  - Skin exfoliation [Unknown]
  - Rash [Unknown]
  - Dry skin [Unknown]
  - Rash pruritic [Unknown]
  - Rash erythematous [Unknown]
